FAERS Safety Report 7654946-1 (Version None)
Quarter: 2011Q3

REPORT INFORMATION
  Report Type: 
  Country: None (occurrence: None)
  Receive Date: 20110729
  Receipt Date: 20110719
  Transmission Date: 20111222
  Serious: Yes (Hospitalization, Other)
  Sender: FDA-Public Use
  Company Number: 2010SP057915

PATIENT
  Age: 16 Year
  Sex: Female
  Weight: 55.7924 kg

DRUGS (2)
  1. ADDERALL XR 10 [Concomitant]
  2. NUVARING [Suspect]
     Dates: start: 20050501, end: 20050801

REACTIONS (20)
  - DISEASE RECURRENCE [None]
  - OEDEMA PERIPHERAL [None]
  - DEEP VEIN THROMBOSIS [None]
  - HEADACHE [None]
  - ANGINA PECTORIS [None]
  - ENDOMETRITIS DECIDUAL [None]
  - THROMBOSIS [None]
  - CHILLS [None]
  - ATELECTASIS [None]
  - BACK PAIN [None]
  - ANTIPHOSPHOLIPID ANTIBODIES POSITIVE [None]
  - ABDOMINAL PAIN [None]
  - POSTPARTUM DEPRESSION [None]
  - EPISTAXIS [None]
  - PAIN IN EXTREMITY [None]
  - BACK INJURY [None]
  - PNEUMONIA [None]
  - MATERNAL EXPOSURE DURING PREGNANCY [None]
  - RASH [None]
  - BACTERIAL TOXAEMIA [None]
